FAERS Safety Report 7451476-7 (Version None)
Quarter: 2011Q2

REPORT INFORMATION
  Report Type: 
  Country: None (occurrence: None)
  Receive Date: 20110502
  Receipt Date: 20110427
  Transmission Date: 20111010
  Serious: Yes (Death, Hospitalization)
  Sender: FDA-Public Use
  Company Number: A0703915A

PATIENT
  Sex: Male
  Weight: 131.4 kg

DRUGS (14)
  1. AVANDIA [Suspect]
     Dosage: 4MG PER DAY
     Route: 048
     Dates: start: 20030201, end: 20041201
  2. ASPIRIN [Concomitant]
  3. ELAVIL [Concomitant]
  4. HUMULIN N [Concomitant]
  5. CLONIDINE [Concomitant]
  6. PLAVIX [Concomitant]
  7. COREG [Concomitant]
  8. GLUCOPHAGE [Concomitant]
     Dates: end: 20041209
  9. COMBIVENT [Concomitant]
  10. REZULIN [Concomitant]
     Dates: end: 20041209
  11. NITROGLYCERIN [Concomitant]
  12. HYZAAR [Concomitant]
  13. LASIX [Concomitant]
  14. COUMADIN [Concomitant]

REACTIONS (6)
  - CARDIAC FAILURE CONGESTIVE [None]
  - ATRIAL FIBRILLATION [None]
  - CARDIAC ARREST [None]
  - ATRIAL FLUTTER [None]
  - ISCHAEMIC CARDIOMYOPATHY [None]
  - INJURY [None]
